FAERS Safety Report 5197073-8 (Version None)
Quarter: 2006Q4

REPORT INFORMATION
  Report Type: 
  Country: None (occurrence: None)
  Receive Date: 20061220
  Receipt Date: 20061206
  Transmission Date: 20070319
  Serious: Yes (Hospitalization, Other)
  Sender: FDA-Public Use
  Company Number: 2006BH012469

PATIENT
  Age: 80 Year
  Sex: Male
  Weight: 54.4 kg

DRUGS (8)
  1. BUMINATE 25% [Suspect]
     Indication: ASCITES
     Dosage: 50 ML EVERY DAY; UNK
     Dates: start: 20060804
  2. BUMINATE 25% [Suspect]
     Indication: OEDEMA
     Dosage: 50 ML EVERY DAY; UNK
     Dates: start: 20060804
  3. ALLOPURINOL [Concomitant]
  4. BLOPRESS [Concomitant]
  5. GASTER D [Concomitant]
  6. LASIX [Concomitant]
  7. RENIVACE [Concomitant]
  8. AMLODIPINE BESYLATE [Concomitant]

REACTIONS (7)
  - BLOOD PRESSURE INCREASED [None]
  - CHILLS [None]
  - DYSPNOEA [None]
  - PYREXIA [None]
  - RENAL IMPAIRMENT [None]
  - TREMOR [None]
  - WHEEZING [None]
